FAERS Safety Report 4413800-9 (Version None)
Quarter: 2004Q3

REPORT INFORMATION
  Report Type: 
  Country: None (occurrence: None)
  Receive Date: 20040802
  Receipt Date: 20040802
  Transmission Date: 20050211
  Serious: No
  Sender: FDA-Public Use
  Company Number: None

PATIENT
  Age: 62 Year
  Sex: Female
  Weight: 53.5244 kg

DRUGS (1)
  1. PIGMENTATION [Suspect]
     Dosage: ONCE

REACTIONS (7)
  - CHEILITIS [None]
  - DERMATITIS EXFOLIATIVE [None]
  - INFECTION [None]
  - LIP BLISTER [None]
  - LIPOGRANULOMA [None]
  - ORAL PUSTULE [None]
  - SKIN DISORDER [None]
